FAERS Safety Report 9633537 (Version 2)
Quarter: 2014Q1

REPORT INFORMATION
  Report Type: Report from Study
  Country: US (occurrence: US)
  Receive Date: 20131021
  Receipt Date: 20140106
  Transmission Date: 20141002
  Serious: Yes (Other)
  Sender: FDA-Public Use
  Company Number: PHEH2013US021781

PATIENT
  Sex: Female

DRUGS (3)
  1. EXELON PATCH [Suspect]
     Indication: DEMENTIA ALZHEIMER^S TYPE
     Dosage: 9.5 MG (PATCH 10 CM2), DAILY
     Route: 062
  2. ZOLOFT [Suspect]
     Dosage: UNK UKN, UNK
  3. ARICEPT [Suspect]
     Dosage: UNK UKN, UNK

REACTIONS (6)
  - Breast cancer [Not Recovered/Not Resolved]
  - Delusion [Not Recovered/Not Resolved]
  - Abnormal behaviour [Unknown]
  - Anger [Not Recovered/Not Resolved]
  - Suspiciousness [Not Recovered/Not Resolved]
  - Confusional state [Not Recovered/Not Resolved]
